FAERS Safety Report 5312313-X (Version None)
Quarter: 2007Q2

REPORT INFORMATION
  Report Type: 
  Country: None (occurrence: None)
  Receive Date: 20070430
  Receipt Date: 20060919
  Transmission Date: 20071010
  Serious: No
  Sender: FDA-Public Use
  Company Number: 2006UW18307

PATIENT
  Age: 48 Year
  Sex: Female
  Weight: 50.8 kg

DRUGS (4)
  1. NEXIUM [Suspect]
     Indication: DYSPEPSIA
     Route: 048
     Dates: start: 20060619
  2. NEXIUM [Suspect]
     Indication: BARRETT'S OESOPHAGUS
     Route: 048
     Dates: start: 20060619
  3. NEXIUM [Suspect]
     Route: 048
     Dates: start: 20010101, end: 20060601
  4. NEXIUM [Suspect]
     Route: 048
     Dates: start: 20010101, end: 20060601

REACTIONS (1)
  - LABORATORY TEST INTERFERENCE [None]
